FAERS Safety Report 8191407-8 (Version None)
Quarter: 2012Q1

REPORT INFORMATION
  Report Type: 
  Country: None (occurrence: None)
  Receive Date: 20120307
  Receipt Date: 20110906
  Transmission Date: 20120608
  Serious: No
  Sender: FDA-Public Use
  Company Number: US-ASTRAZENECA-2011SE53727

PATIENT
  Age: 52 Year
  Sex: Female

DRUGS (3)
  1. ZOMIG [Suspect]
     Route: 048
  2. ANTI ITCH CREAM [Concomitant]
  3. ANTIBIOTICS [Concomitant]

REACTIONS (4)
  - SKIN DISCOLOURATION [None]
  - HYPERSENSITIVITY [None]
  - PRURITUS [None]
  - RASH [None]
